FAERS Safety Report 7630487-2 (Version None)
Quarter: 2011Q3

REPORT INFORMATION
  Report Type: 
  Country: None (occurrence: None)
  Receive Date: 20110722
  Receipt Date: 20110710
  Transmission Date: 20111222
  Serious: Yes (Hospitalization)
  Sender: FDA-Public Use
  Company Number: US-ELI_LILLY_AND_COMPANY-US201106004063

PATIENT
  Sex: Female

DRUGS (16)
  1. FORTEO [Suspect]
     Dosage: 20 UG, QD
  2. FORTEO [Suspect]
     Dosage: 20 UG, QD
     Dates: start: 20110613
  3. SIROLIMUS [Concomitant]
  4. OMEPRAZOLE [Concomitant]
  5. POSACONAZOLE [Concomitant]
  6. OSCAL [Concomitant]
  7. VALCYTE [Concomitant]
  8. CELLCEPT [Concomitant]
  9. FORTEO [Suspect]
     Indication: OSTEOPOROSIS
     Dosage: 20 UG, QD
     Dates: start: 20110608, end: 20110610
  10. SYNTHROID [Concomitant]
  11. PREDNISONE [Concomitant]
  12. BACTRIM [Concomitant]
  13. ASPIRIN [Concomitant]
  14. AMBIEN [Concomitant]
  15. STARLIX [Concomitant]
  16. PRAVASTATIN [Concomitant]

REACTIONS (5)
  - DRUG DOSE OMISSION [None]
  - INCORRECT STORAGE OF DRUG [None]
  - BACK PAIN [None]
  - BONE PAIN [None]
  - HOSPITALISATION [None]
